FAERS Safety Report 5104992-7 (Version None)
Quarter: 2006Q3

REPORT INFORMATION
  Report Type: 
  Country: None (occurrence: None)
  Receive Date: 20060911
  Receipt Date: 20060904
  Transmission Date: 20061208
  Serious: Yes (Other)
  Sender: FDA-Public Use
  Company Number: 3131

PATIENT
  Age: 47 Year
  Sex: Female

DRUGS (5)
  1. LEVOTHYROXINE, 50 MCG, PO, [Suspect]
     Indication: HYPOTHYROIDISM
     Dosage: 50 MCG, PO
     Route: 048
  2. RISPERIDONE [Concomitant]
  3. CLOZAPINE [Concomitant]
  4. TRIFLUOPERAZINE HCL [Concomitant]
  5. HALOPERIDOL [Concomitant]

REACTIONS (5)
  - BLOOD THYROID STIMULATING HORMONE INCREASED [None]
  - DYSKINESIA [None]
  - THERAPY NON-RESPONDER [None]
  - TREATMENT NONCOMPLIANCE [None]
  - TRISMUS [None]
